FAERS Safety Report 23169886 (Version 3)
Quarter: 2024Q1

REPORT INFORMATION
  Report Type: Spontaneous
  Country: CO (occurrence: CO)
  Receive Date: 20231110
  Receipt Date: 20240103
  Transmission Date: 20240410
  Serious: No
  Sender: FDA-Public Use
  Company Number: CO-PFIZER INC-PV202300175671

PATIENT
  Age: 3 Year
  Sex: Female

DRUGS (1)
  1. GENOTROPIN [Suspect]
     Active Substance: SOMATROPIN
     Dosage: 0.6 MG
     Route: 058

REACTIONS (4)
  - Drug dose omission by device [Unknown]
  - Wrong technique in product usage process [Unknown]
  - Device breakage [Unknown]
  - Device leakage [Unknown]
